FAERS Safety Report 4849097-5 (Version None)
Quarter: 2005Q4

REPORT INFORMATION
  Report Type: 
  Country: None (occurrence: None)
  Receive Date: 20051209
  Receipt Date: 20051026
  Transmission Date: 20060501
  Serious: Yes (Hospitalization)
  Sender: FDA-Public Use
  Company Number: 2005PK01997

PATIENT
  Age: 693 Month
  Sex: Female
  Weight: 53.5 kg

DRUGS (3)
  1. NEXIUM [Suspect]
     Indication: REFLUX OESOPHAGITIS
     Route: 048
     Dates: end: 20051020
  2. CIPRAMIL [Concomitant]
     Indication: DEPRESSION
     Route: 048
     Dates: end: 20051020
  3. IBEROGAST [Concomitant]
     Indication: INTESTINAL FUNCTIONAL DISORDER
     Route: 048
     Dates: start: 20051011, end: 20051020

REACTIONS (1)
  - GRANULOCYTOPENIA [None]
